FAERS Safety Report 10206094 (Version 1)
Quarter: 2014Q2

REPORT INFORMATION
  Report Type: Spontaneous
  Country: US (occurrence: US)
  Receive Date: 20140530
  Receipt Date: 20140530
  Transmission Date: 20141212
  Serious: No
  Sender: FDA-Public Use
  Company Number: US-PFIZER INC-2014145232

PATIENT
  Age: 63 Year
  Sex: Male

DRUGS (7)
  1. INLYTA [Suspect]
     Dosage: 5 MG, 2X/DAY
     Route: 048
  2. AFINITOR [Concomitant]
     Dosage: 10 MG, UNK
  3. FLUTICASONE [Concomitant]
     Dosage: 50 UG, UNK
  4. IMODIUM A-D [Concomitant]
     Dosage: 2 MG, UNK
  5. ZOCOR [Concomitant]
     Dosage: 10 MG, UNK
  6. ZANTAC [Concomitant]
     Dosage: UNK (75 TAB)
  7. VITAMIN D [Concomitant]
     Dosage: 1000 IU, UNK

REACTIONS (3)
  - Drug hypersensitivity [Unknown]
  - Erythema [Unknown]
  - Skin exfoliation [Unknown]
